FAERS Safety Report 18100426 (Version 6)
Quarter: 2021Q4

REPORT INFORMATION
  Report Type: Report from Study
  Country: US (occurrence: US)
  Receive Date: 20200731
  Receipt Date: 20211112
  Transmission Date: 20220303
  Serious: Yes (Life-Threatening, Hospitalization)
  Sender: FDA-Public Use
  Company Number: US-PCYC-2017PHC17142

PATIENT
  Age: 71 Year
  Sex: Female
  Weight: 96 kg

DRUGS (14)
  1. IMBRUVICA [Suspect]
     Active Substance: IBRUTINIB
     Indication: Chronic lymphocytic leukaemia
     Dosage: 420 MG, QD
     Route: 048
     Dates: start: 20170629, end: 20170905
  2. METOPROLOL [Concomitant]
     Active Substance: METOPROLOL
     Indication: Hypertension
     Dosage: 100 MG, QD
     Route: 048
     Dates: end: 20170901
  3. METOPROLOL [Concomitant]
     Active Substance: METOPROLOL
     Indication: Atrial fibrillation
     Dosage: 37.5 MG, BID
     Route: 048
     Dates: start: 20170919, end: 20170922
  4. XARELTO [Concomitant]
     Active Substance: RIVAROXABAN
     Indication: Atrial fibrillation
     Dosage: 10 MG, QD
     Route: 048
     Dates: start: 20170627
  5. ALLOPURINOL [Concomitant]
     Active Substance: ALLOPURINOL
     Indication: Prophylaxis
     Dosage: 300 MG, QD
     Route: 048
     Dates: start: 20170627
  6. CALCIUM CARBONATE [Concomitant]
     Active Substance: CALCIUM CARBONATE
     Indication: Excessive dietary supplement intake
     Dosage: ONE TABLET, PRN
     Route: 048
  7. IMODIUM [Concomitant]
     Active Substance: LOPERAMIDE HYDROCHLORIDE
     Indication: Diarrhoea
     Dosage: 500 MG, QD
     Route: 048
     Dates: start: 201707, end: 201707
  8. TYLENOL                            /00020001/ [Concomitant]
     Indication: Pain in extremity
     Dosage: 500 MG, QD
     Route: 048
     Dates: start: 201708, end: 20170901
  9. FOSFOMYCIN [Concomitant]
     Active Substance: FOSFOMYCIN
     Indication: Urinary tract infection
     Dosage: 3 G, QD
     Route: 048
     Dates: start: 20170824, end: 20170824
  10. LASIX                              /00032601/ [Concomitant]
     Indication: Oedema peripheral
     Dosage: 20 MG, QD
     Route: 048
     Dates: start: 20170926
  11. DOCUSATE [Concomitant]
     Active Substance: DOCUSATE
     Indication: Constipation
     Dosage: 50 MG, QD
     Route: 048
     Dates: start: 20170918
  12. MIRALAX                            /00754501/ [Concomitant]
     Indication: Constipation
     Dosage: 17 G, PRN
     Route: 048
     Dates: start: 20170916
  13. OXYCODONE [Concomitant]
     Active Substance: OXYCODONE
     Indication: Pain
     Dosage: 5-10 MG Q6H
     Dates: start: 20170912
  14. ATIVAN [Concomitant]
     Active Substance: LORAZEPAM
     Indication: Anxiety
     Dosage: 0.5 MG, QHS
     Route: 048
     Dates: start: 20170912

REACTIONS (5)
  - Cardiac failure congestive [Not Recovered/Not Resolved]
  - Hyponatraemia [Recovered/Resolved]
  - Hyperkalaemia [Recovered/Resolved]
  - Oedema peripheral [Recovered/Resolved]
  - Atrial fibrillation [Not Recovered/Not Resolved]

NARRATIVE: CASE EVENT DATE: 20170905
